FAERS Safety Report 4777327-7 (Version None)
Quarter: 2005Q3

REPORT INFORMATION
  Report Type: 
  Country: None (occurrence: None)
  Receive Date: 20050915
  Receipt Date: 20050909
  Transmission Date: 20060218
  Serious: Yes (Hospitalization)
  Sender: FDA-Public Use
  Company Number: 510.07.14-1409-AE05-002

PATIENT
  Age: 45 Year
  Sex: Female

DRUGS (3)
  1. INTERFERON [Suspect]
     Indication: HEPATITIS C
     Dosage: 25 ?F, SUBCUTANEOUS
     Route: 058
     Dates: start: 20050516, end: 20050909
  2. RIBAVIRIN [Suspect]
     Dosage: 1200 MG, ORAL
     Route: 048
  3. L-THYROXIN [Concomitant]

REACTIONS (3)
  - BREAST CANCER [None]
  - BREAST NEOPLASM [None]
  - FIBROCYSTIC BREAST DISEASE [None]
